FAERS Safety Report 10144967 (Version 1)
Quarter: 2014Q2

REPORT INFORMATION
  Report Type: Spontaneous
  Country: US (occurrence: US)
  Receive Date: 20140430
  Receipt Date: 20140430
  Transmission Date: 20141212
  Serious: No
  Sender: FDA-Public Use
  Company Number: US-009507513-1404USA013869

PATIENT
  Age: 27 Year
  Sex: Female

DRUGS (1)
  1. IMPLANON [Suspect]
     Indication: CONTRACEPTION
     Dosage: 68MG
     Route: 059
     Dates: start: 20110422

REACTIONS (3)
  - Menstruation irregular [Unknown]
  - Menorrhagia [Unknown]
  - Incorrect drug administration duration [Unknown]
